FAERS Safety Report 5249981-7 (Version None)
Quarter: 2007Q1

REPORT INFORMATION
  Report Type: 
  Country: None (occurrence: None)
  Receive Date: 20070228
  Receipt Date: 20060113
  Transmission Date: 20070707
  Serious: Yes (Hospitalization, Other)
  Sender: FDA-Public Use
  Company Number: 8013429

PATIENT
  Age: 69 Year
  Sex: Male

DRUGS (7)
  1. LAMICTAL [Suspect]
     Indication: DRUG USE FOR UNKNOWN INDICATION
     Route: 048
     Dates: start: 20050701
  2. KEPPRA [Suspect]
     Dosage: 2000MG PER DAY
     Route: 048
     Dates: start: 20050701
  3. DIOVAN [Suspect]
     Indication: HYPERTENSION
     Dosage: 160MG PER DAY
     Route: 048
     Dates: start: 20040101
  4. DILANTIN [Concomitant]
     Route: 048
     Dates: start: 20050101, end: 20050901
  5. TOPROL-XL [Concomitant]
     Route: 048
     Dates: start: 20040101
  6. FUROSEMIDE [Concomitant]
     Route: 048
  7. NITROGLYCERIN [Concomitant]
     Route: 060

REACTIONS (5)
  - AGGRESSION [None]
  - ASTHENIA [None]
  - CONFUSIONAL STATE [None]
  - DIZZINESS [None]
  - DYSPNOEA [None]
